FAERS Safety Report 9764678 (Version 3)
Quarter: 2014Q2

REPORT INFORMATION
  Report Type: Report from Study
  Country: US (occurrence: US)
  Receive Date: 20131217
  Receipt Date: 20140519
  Transmission Date: 20141212
  Serious: Yes (Hospitalization)
  Sender: FDA-Public Use
  Company Number: US-SA-2013SA109964

PATIENT
  Age: 44 Year
  Sex: Male

DRUGS (1)
  1. AUBAGIO [Suspect]
     Indication: MULTIPLE SCLEROSIS
     Dosage: TAKEN FROM: ABOUT 3 WEEKS AGO
     Route: 048
     Dates: start: 20131003

REACTIONS (9)
  - Knee arthroplasty [Unknown]
  - Back pain [Not Recovered/Not Resolved]
  - Hair growth abnormal [Unknown]
  - Nail growth abnormal [Unknown]
  - Somnolence [Unknown]
  - Decreased immune responsiveness [Unknown]
  - Pyrexia [Not Recovered/Not Resolved]
  - White blood cell count decreased [Not Recovered/Not Resolved]
  - Cellulitis [Unknown]
